FAERS Safety Report 5859759-9 (Version None)
Quarter: 2008Q3

REPORT INFORMATION
  Report Type: 
  Country: None (occurrence: None)
  Receive Date: 20080818
  Receipt Date: 20080516
  Transmission Date: 20090109
  Serious: No
  Sender: FDA-Public Use
  Company Number: WAES 0805USA03815

PATIENT
  Age: 71 Year
  Sex: Female

DRUGS (1)
  1. JANUVIA [Suspect]
     Indication: TYPE 2 DIABETES MELLITUS
     Dosage: 100 MG/TID/PO
     Route: 048
     Dates: start: 20071001

REACTIONS (5)
  - HEADACHE [None]
  - NASAL CONGESTION [None]
  - OVERDOSE [None]
  - RASH [None]
  - RHINORRHOEA [None]
